FAERS Safety Report 4887811-3 (Version None)
Quarter: 2006Q1

REPORT INFORMATION
  Report Type: 
  Country: None (occurrence: None)
  Receive Date: 20060123
  Receipt Date: 20050218
  Transmission Date: 20060701
  Serious: Yes (Hospitalization)
  Sender: FDA-Public Use
  Company Number: US-MERCK-0502USA02718

PATIENT
  Age: 59 Year
  Sex: Female
  Weight: 116 kg

DRUGS (4)
  1. TRAMADOL HYDROCHLORIDE [Concomitant]
     Route: 065
  2. VIOXX [Suspect]
     Indication: BACK PAIN
     Route: 048
     Dates: start: 20001113, end: 20041001
  3. GLYBURIDE [Concomitant]
     Route: 065
  4. METFORMIN [Concomitant]
     Route: 065

REACTIONS (2)
  - CEREBROVASCULAR ACCIDENT [None]
  - HAEMORRHOIDAL HAEMORRHAGE [None]
